FAERS Safety Report 9927146 (Version 1)
Quarter: 2014Q1

REPORT INFORMATION
  Report Type: Spontaneous
  Country: US (occurrence: US)
  Receive Date: 20140226
  Receipt Date: 20140226
  Transmission Date: 20141002
  Serious: No
  Sender: FDA-Public Use
  Company Number: US-AMGEN-USASP2014005321

PATIENT
  Age: 54 Year
  Sex: Male

DRUGS (1)
  1. ENBREL [Suspect]
     Indication: ANKYLOSING SPONDYLITIS
     Dosage: 50 MG, QWK
     Route: 065
     Dates: start: 20040101

REACTIONS (6)
  - Bedridden [Recovered/Resolved]
  - Malaise [Unknown]
  - Back pain [Recovered/Resolved]
  - Nasopharyngitis [Not Recovered/Not Resolved]
  - Influenza [Recovered/Resolved]
  - Injection site pain [Recovered/Resolved]
